FAERS Safety Report 5780329-5 (Version None)
Quarter: 2008Q2

REPORT INFORMATION
  Report Type: 
  Country: None (occurrence: None)
  Receive Date: 20080620
  Receipt Date: 20080612
  Transmission Date: 20081010
  Serious: Yes (Other)
  Sender: FDA-Public Use
  Company Number: A0733958A

PATIENT
  Sex: Male

DRUGS (8)
  1. AVANDIA [Suspect]
     Indication: DRUG USE FOR UNKNOWN INDICATION
     Dosage: 4MG PER DAY
     Route: 048
     Dates: start: 20020510, end: 20060109
  2. HYDROCODONE BITARTRATE AND ACETAMINOPHEN [Concomitant]
  3. DIAZEPAM [Concomitant]
  4. ASPIRIN [Concomitant]
  5. GLUCOTROL [Concomitant]
  6. LOTREL [Concomitant]
  7. PENTOXIFYLLINE [Concomitant]
  8. CHOLESTYRAMINE [Concomitant]

REACTIONS (7)
  - ARTERIOSCLEROSIS [None]
  - BRONCHITIS [None]
  - CEREBROVASCULAR ACCIDENT [None]
  - CHRONIC OBSTRUCTIVE PULMONARY DISEASE [None]
  - MYOCARDIAL INFARCTION [None]
  - RENAL FAILURE CHRONIC [None]
  - VENTRICULAR TACHYCARDIA [None]
